FAERS Safety Report 17470556 (Version 1)
Quarter: 2020Q1

REPORT INFORMATION
  Report Type: Spontaneous
  Country: US (occurrence: US)
  Receive Date: 20200227
  Receipt Date: 20200227
  Transmission Date: 20200409
  Serious: No
  Sender: FDA-Public Use
  Company Number: US-P+L DEVELOPMENT, LLC-2081050

PATIENT
  Sex: Female

DRUGS (1)
  1. VITAMIN A AND VITAMIN D [Suspect]
     Active Substance: PETROLATUM

REACTIONS (1)
  - Product counterfeit [None]
